FAERS Safety Report 9296707 (Version 1)
Quarter: 2013Q2

REPORT INFORMATION
  Report Type: Spontaneous
  Country: US (occurrence: None)
  Receive Date: 20130515
  Receipt Date: 20130515
  Transmission Date: 20140414
  Serious: Yes (Hospitalization)
  Sender: FDA-Public Use
  Company Number: UTC-032326

PATIENT
  Age: 64 Year
  Sex: Female
  Weight: 45.5 kg

DRUGS (1)
  1. TYVASO [Suspect]
     Indication: PULMONARY ARTERIAL HYPERTENSION
     Dosage: 9 DOSAGES OF INHALANT PER DAY.
     Route: 055
     Dates: start: 20130402

REACTIONS (2)
  - Haematochezia [None]
  - Pain [None]
